FAERS Safety Report 20648816 (Version 1)
Quarter: 2022Q1

REPORT INFORMATION
  Report Type: Spontaneous
  Country: US (occurrence: US)
  Receive Date: 20220329
  Receipt Date: 20220329
  Transmission Date: 20220424
  Serious: No
  Sender: FDA-Public Use
  Company Number: US-BAYER-2022A040512

PATIENT

DRUGS (1)
  1. MIRALAX [Suspect]
     Active Substance: POLYETHYLENE GLYCOL 3350

REACTIONS (2)
  - Muscle strain [Unknown]
  - Constipation [Unknown]

NARRATIVE: CASE EVENT DATE: 20220301
